FAERS Safety Report 7994284-0 (Version None)
Quarter: 2011Q4

REPORT INFORMATION
  Report Type: 
  Country: None (occurrence: None)
  Receive Date: 20111217
  Receipt Date: 20111217
  Transmission Date: 20120403
  Serious: No
  Sender: FDA-Public Use
  Company Number: None

PATIENT
  Sex: Female
  Weight: 77.1115 kg

DRUGS (2)
  1. METRONIDAZOLE [Suspect]
     Indication: COLITIS
     Dosage: 21 1 3X DAILY ORAL
     Route: 048
     Dates: start: 20110919, end: 20110923
  2. CIPRO [Suspect]
     Indication: COLITIS
     Dosage: 14 1 2X DAILY ORAL
     Route: 048
     Dates: start: 20110919, end: 20110921

REACTIONS (1)
  - NEUROPATHY PERIPHERAL [None]
